FAERS Safety Report 6422319-5 (Version None)
Quarter: 2009Q4

REPORT INFORMATION
  Report Type: 
  Country: None (occurrence: None)
  Receive Date: 20091030
  Receipt Date: 20091019
  Transmission Date: 20100525
  Serious: Yes (Hospitalization)
  Sender: FDA-Public Use
  Company Number: PH-JNJFOC-20090806851

PATIENT
  Sex: Female
  Weight: 47.7 kg

DRUGS (40)
  1. GOLIMUMAB [Suspect]
     Route: 058
  2. GOLIMUMAB [Suspect]
     Route: 058
  3. GOLIMUMAB [Suspect]
     Route: 058
  4. GOLIMUMAB [Suspect]
     Route: 058
  5. GOLIMUMAB [Suspect]
     Route: 058
  6. GOLIMUMAB [Suspect]
     Route: 058
  7. GOLIMUMAB [Suspect]
     Route: 058
  8. GOLIMUMAB [Suspect]
     Route: 058
  9. GOLIMUMAB [Suspect]
     Route: 058
  10. GOLIMUMAB [Suspect]
     Route: 058
  11. GOLIMUMAB [Suspect]
     Route: 058
  12. GOLIMUMAB [Suspect]
     Route: 058
  13. GOLIMUMAB [Suspect]
     Route: 058
  14. GOLIMUMAB [Suspect]
     Route: 058
  15. GOLIMUMAB [Suspect]
     Route: 058
  16. GOLIMUMAB [Suspect]
     Route: 058
  17. GOLIMUMAB [Suspect]
     Route: 058
  18. GOLIMUMAB [Suspect]
     Route: 058
  19. GOLIMUMAB [Suspect]
     Route: 058
  20. GOLIMUMAB [Suspect]
     Route: 058
  21. GOLIMUMAB [Suspect]
     Route: 058
  22. GOLIMUMAB [Suspect]
     Route: 058
  23. GOLIMUMAB [Suspect]
     Route: 058
  24. GOLIMUMAB [Suspect]
     Route: 058
  25. GOLIMUMAB [Suspect]
     Route: 058
  26. GOLIMUMAB [Suspect]
     Route: 058
  27. GOLIMUMAB [Suspect]
     Route: 058
  28. GOLIMUMAB [Suspect]
     Indication: RHEUMATOID ARTHRITIS
     Route: 058
  29. PLACEBO [Suspect]
     Route: 048
  30. PLACEBO [Suspect]
     Route: 048
  31. PLACEBO [Suspect]
     Route: 048
  32. PLACEBO [Suspect]
     Route: 048
  33. PLACEBO [Suspect]
     Route: 048
  34. PLACEBO [Suspect]
     Indication: RHEUMATOID ARTHRITIS
     Route: 048
  35. PREDNISONE [Concomitant]
     Route: 048
  36. FOLIC ACID [Concomitant]
     Route: 048
  37. CALCIUM [Concomitant]
     Route: 048
  38. ASCORBIC ACID [Concomitant]
     Route: 048
  39. METHOTREXATE [Concomitant]
     Route: 048
  40. BON VIVA (IBANDRONATE) [Concomitant]
     Route: 048

REACTIONS (1)
  - OSTEOMYELITIS [None]
